FAERS Safety Report 18729621 (Version 2)
Quarter: 2021Q2

REPORT INFORMATION
  Report Type: Report from Study
  Country: US (occurrence: US)
  Receive Date: 20210112
  Receipt Date: 20210503
  Transmission Date: 20210717
  Serious: Yes (Hospitalization)
  Sender: FDA-Public Use
  Company Number: US-VERTEX PHARMACEUTICALS-2021-000176

PATIENT
  Age: 59 Year
  Sex: Female

DRUGS (13)
  1. DOK PLUS [CASANTHRANOL;DOCUSATE SODIUM] [Concomitant]
  2. TOBRAMYCIN. [Concomitant]
     Active Substance: TOBRAMYCIN
  3. OXYCODONE [Concomitant]
     Active Substance: OXYCODONE
  4. LEVEMIR [Concomitant]
     Active Substance: INSULIN DETEMIR
  5. TRIKAFTA [Suspect]
     Active Substance: ELEXACAFTOR\IVACAFTOR\TEZACAFTOR
     Indication: CYSTIC FIBROSIS
     Dosage: 2 TABS (ELEXA 100 MG/ TEZA 50 MG/ IVA 75 MG) AM AND 1 TAB (IVA 150 MG) PM
     Route: 048
     Dates: start: 20191221
  6. PAIN RELIEF NOS [Concomitant]
     Active Substance: CAMPHOR (SYNTHETIC)\LEVOMENTHOL\MENTHYL SALICYLATE OR CAMPHOR (SYNTHETIC)\MENTHOL\MENTHYL SALICYLATE OR MENTHOL\MENTHYL SALICYLATE
  7. SMZ?TMP [Concomitant]
     Active Substance: SULFAMETHOXAZOLE\TRIMETHOPRIM
  8. ARIMIDEX [Concomitant]
     Active Substance: ANASTROZOLE
  9. ENTYVIO [Concomitant]
     Active Substance: VEDOLIZUMAB
  10. PULMOZYME [Concomitant]
     Active Substance: DORNASE ALFA
  11. GABAPENTIN. [Concomitant]
     Active Substance: GABAPENTIN
  12. ELIQUIS [Concomitant]
     Active Substance: APIXABAN
  13. NOVOLOG [Concomitant]
     Active Substance: INSULIN ASPART

REACTIONS (3)
  - Tibia fracture [Recovering/Resolving]
  - Fibula fracture [Recovered/Resolved]
  - Weight increased [Recovering/Resolving]

NARRATIVE: CASE EVENT DATE: 20201208
